FAERS Safety Report 25559674 (Version 11)
Quarter: 2025Q4

REPORT INFORMATION
  Report Type: Spontaneous
  Country: CA (occurrence: CA)
  Receive Date: 20250715
  Receipt Date: 20251031
  Transmission Date: 20260117
  Serious: Yes (Other)
  Sender: ASTELLAS
  Company Number: CA-PFIZER INC-PV202500036775

PATIENT
  Age: 79 Year
  Sex: Male
  Weight: 65 kg

DRUGS (31)
  1. PADCEV [Suspect]
     Active Substance: ENFORTUMAB VEDOTIN-EJFV
     Indication: Transitional cell carcinoma metastatic
     Dosage: 1.25 MG/KG, CYCLIC (D1 AND 8 OF 21 DAY CYCLE)[POWDER FOR SOLUTION FOR INFUSION]
     Route: 042
     Dates: start: 20250314
  2. PADCEV [Suspect]
     Active Substance: ENFORTUMAB VEDOTIN-EJFV
     Dosage: 81 MG, CYCLIC (D1 AND 8 OF 21 DAY CYCLE), [POWDER FOR SOLUTION FOR INFUSION]
     Route: 042
     Dates: start: 20250321
  3. PADCEV [Suspect]
     Active Substance: ENFORTUMAB VEDOTIN-EJFV
     Dosage: 78.5 MG, CYCLIC (D1 AND 8 OF 21 DAY CYCLE), [POWDER FOR SOLUTION FOR INFUSION]
     Route: 042
     Dates: start: 20250404
  4. PADCEV [Suspect]
     Active Substance: ENFORTUMAB VEDOTIN-EJFV
     Dosage: 78.5 MG, CYCLIC (D1 AND 8 OF 21 DAY CYCLE),?[POWDER FOR SOLUTION FOR INFUSION]
     Route: 042
     Dates: start: 20250411
  5. PADCEV [Suspect]
     Active Substance: ENFORTUMAB VEDOTIN-EJFV
     Dosage: 78.5 MG, CYCLIC(CYCLE 3, DAY 1, INFUSION #5)?[POWDER FOR SOLUTION FOR INFUSION]
     Route: 042
     Dates: start: 20250425
  6. PADCEV [Suspect]
     Active Substance: ENFORTUMAB VEDOTIN-EJFV
     Dosage: 78.5 MG, CYCLIC (D1 + D8)?[POWDER FOR SOLUTION FOR INFUSION]
     Route: 042
     Dates: start: 20250502
  7. PADCEV [Suspect]
     Active Substance: ENFORTUMAB VEDOTIN-EJFV
     Dosage: 82 MG, CYCLIC (DAY 1 AND DAY 8 OF 21-DAY CYCLE)?[POWDER FOR SOLUTION FOR INFUSION]
     Route: 042
     Dates: start: 20250523
  8. PADCEV [Suspect]
     Active Substance: ENFORTUMAB VEDOTIN-EJFV
     Dosage: 85 MG, CYCLIC (DAY 1 AND DAY 8 OF 21-DAY CYCLE)?[POWDER FOR SOLUTION FOR INFUSION]
     Route: 042
     Dates: start: 20250523
  9. PADCEV [Suspect]
     Active Substance: ENFORTUMAB VEDOTIN-EJFV
     Dosage: UNKNOWN DOSE AND FREQUENCY?[POWDER FOR SOLUTION FOR INFUSION]
     Route: 042
     Dates: start: 20250530
  10. PADCEV [Suspect]
     Active Substance: ENFORTUMAB VEDOTIN-EJFV
     Dosage: 85 MG, CYCLIC, D1 + D8?[POWDER FOR SOLUTION FOR INFUSION]
     Route: 042
     Dates: start: 20250613
  11. PADCEV [Suspect]
     Active Substance: ENFORTUMAB VEDOTIN-EJFV
     Dosage: 85 MG, DAY 1 AND DAY 8 OF 21 DAY CYCLE?[POWDER FOR SOLUTION FOR INFUSION]
     Route: 042
     Dates: start: 20250620
  12. PADCEV [Suspect]
     Active Substance: ENFORTUMAB VEDOTIN-EJFV
     Dosage: 85 MG, CYCLIC, DAY 1 AND DAY 8 OF 21-DAY CYCLE?[POWDER FOR SOLUTION FOR INFUSION]
     Route: 042
     Dates: start: 20250704
  13. PADCEV [Suspect]
     Active Substance: ENFORTUMAB VEDOTIN-EJFV
     Dosage: 68 MG (DAY 1 AND DAY 8 OF 21-DAY CYCLE)?[POWDER FOR SOLUTION FOR INFUSION]
     Route: 042
     Dates: start: 20250711
  14. PADCEV [Suspect]
     Active Substance: ENFORTUMAB VEDOTIN-EJFV
     Dosage: 82.5 MG (DAY 1 AND DAY 8 OF 21-DAY CYCLE)?POWDER FOR SOLUTION FOR INFUSION
     Route: 042
     Dates: start: 20250725
  15. PADCEV [Suspect]
     Active Substance: ENFORTUMAB VEDOTIN-EJFV
     Dosage: 82.5 MG, FREQUENCY DAY 1 AND DAY 8 OF 21-DAY CYCLE?POWDER FOR SOLUTION FOR INFUSION
     Route: 042
     Dates: start: 20250801
  16. PADCEV [Suspect]
     Active Substance: ENFORTUMAB VEDOTIN-EJFV
     Dosage: 82.5 MG, FREQUENCY DAY 1 AND DAY 8 OF 21-DAY CYCLE?POWDER FOR SOLUTION FOR INFUSION
     Route: 042
     Dates: start: 20250815
  17. PADCEV [Suspect]
     Active Substance: ENFORTUMAB VEDOTIN-EJFV
     Dosage: 82.5 MG, FREQUENCY DAY 1 AND DAY 8 OF 21-DAY CYCLE?POWDER FOR SOLUTION FOR INFUSION
     Route: 042
     Dates: start: 20250822
  18. PADCEV [Suspect]
     Active Substance: ENFORTUMAB VEDOTIN-EJFV
     Dosage: 82.5 MG, CYCLIC, DAY 1 AND DAY 8 OF 21-DAY CYCLE.?POWDER FOR SOLUTION FOR INFUSION
     Route: 042
     Dates: start: 20250905
  19. PADCEV [Suspect]
     Active Substance: ENFORTUMAB VEDOTIN-EJFV
     Dosage: 82.5 MG, CYCLIC, DAY 1 AND DAY 8 OF 21-DAY CYCLE.?POWDER FOR SOLUTION FOR INFUSION
     Route: 042
     Dates: start: 20250912
  20. PADCEV [Suspect]
     Active Substance: ENFORTUMAB VEDOTIN-EJFV
     Dosage: 82.5 MG, CYCLIC, DAY 1 AND DAY 8 OF 21-DAY CYCLE.?POWDER FOR SOLUTION FOR INFUSION
     Route: 042
     Dates: start: 20250926
  21. PADCEV [Suspect]
     Active Substance: ENFORTUMAB VEDOTIN-EJFV
     Dosage: 82.5 MG, CYCLIC, DAY 1 AND DAY 8 OF 21-DAY CYCLE.?POWDER FOR SOLUTION FOR INFUSION
     Route: 042
     Dates: start: 20251003
  22. PADCEV [Suspect]
     Active Substance: ENFORTUMAB VEDOTIN-EJFV
     Dosage: 81 MG, CYCLIC, DAY 1 AND DAY 8 OF 21-DAY CYCLE?POWDER FOR SOLUTION FOR INFUSION
     Route: 042
     Dates: start: 20251017
  23. PADCEV [Suspect]
     Active Substance: ENFORTUMAB VEDOTIN-EJFV
     Dosage: 81 MG, CYCLIC, DAY 1 AND DAY 8 OF 21-DAY CYCLE?POWDER FOR SOLUTION FOR INFUSION
     Route: 042
     Dates: start: 20251024
  24. MYRBETRIQ [Concomitant]
     Active Substance: MIRABEGRON
     Indication: Product used for unknown indication
     Dosage: 50 MG, DAILY
     Route: 048
  25. CRESTOR [Concomitant]
     Active Substance: ROSUVASTATIN CALCIUM
     Indication: Product used for unknown indication
     Dosage: 10 MG, DAILY
     Route: 048
  26. DOXAZIN [DOXAZOSIN] [Concomitant]
     Indication: Product used for unknown indication
     Dosage: 1 MG, DAILY
     Route: 048
  27. KEYTRUDA [Concomitant]
     Active Substance: PEMBROLIZUMAB
     Indication: Product used for unknown indication
     Dosage: 200 MG, EVERY 3 WEEKS; ONGOING
     Route: 042
  28. TYLENOL [Concomitant]
     Active Substance: ACETAMINOPHEN
     Indication: Product used for unknown indication
     Dosage: 500 MG EVERY 6 HRS AS NEEDED
     Route: 048
  29. DILTIAZEM HYDROCHLORIDE [Concomitant]
     Active Substance: DILTIAZEM HYDROCHLORIDE
     Indication: Product used for unknown indication
     Dosage: 360 MG, DAILY
     Route: 048
  30. CYANOCOBALAMIN [Concomitant]
     Active Substance: CYANOCOBALAMIN
     Indication: Product used for unknown indication
     Dosage: 1200 MG, DAILY
     Route: 048
  31. PERINDOPRIL [Concomitant]
     Active Substance: PERINDOPRIL
     Indication: Product used for unknown indication
     Dosage: 4MG, DAILY
     Route: 048

REACTIONS (9)
  - Blood pressure systolic increased [Unknown]
  - Neuropathy peripheral [Not Recovered/Not Resolved]
  - Cystitis [Recovered/Resolved]
  - Blood pressure fluctuation [Unknown]
  - Heart rate decreased [Recovered/Resolved]
  - Ligament sprain [Not Recovered/Not Resolved]
  - Body temperature decreased [Unknown]
  - Arthralgia [Unknown]
  - Fatigue [Unknown]

NARRATIVE: CASE EVENT DATE: 20250321
